FAERS Safety Report 6386505-5 (Version None)
Quarter: 2009Q4

REPORT INFORMATION
  Report Type: 
  Country: None (occurrence: None)
  Receive Date: 20091002
  Receipt Date: 20090622
  Transmission Date: 20100525
  Serious: No
  Sender: FDA-Public Use
  Company Number: US-ASTRAZENECA-2009UW16665

PATIENT
  Age: 59 Year
  Sex: Female
  Weight: 84.8 kg

DRUGS (4)
  1. ARIMIDEX [Suspect]
     Route: 048
     Dates: start: 20090619
  2. CALCIUM [Concomitant]
  3. MAGNESIUM [Concomitant]
  4. VITAMIN D [Concomitant]

REACTIONS (5)
  - DIARRHOEA [None]
  - DIZZINESS [None]
  - HEART RATE INCREASED [None]
  - HYPERHIDROSIS [None]
  - NAUSEA [None]
